FAERS Safety Report 18639260 (Version 1)
Quarter: 2020Q4

REPORT INFORMATION
  Report Type: Other
  Country: SE (occurrence: SE)
  Receive Date: 20201219
  Receipt Date: 20201219
  Transmission Date: 20210114
  Serious: Yes (Other)
  Sender: FDA-Public Use
  Company Number: SE-STRIDES ARCOLAB LIMITED-2020SP015823

PATIENT
  Sex: Female

DRUGS (1)
  1. GABAPENTIN. [Suspect]
     Active Substance: GABAPENTIN
     Indication: PRODUCT USED FOR UNKNOWN INDICATION
     Dosage: UNK, HARD CAPSULE
     Route: 065
     Dates: end: 20200229

REACTIONS (3)
  - Dysphonia [Unknown]
  - Cough [Unknown]
  - Cataract [Unknown]

NARRATIVE: CASE EVENT DATE: 2019
